FAERS Safety Report 7098552-9 (Version None)
Quarter: 2010Q4

REPORT INFORMATION
  Report Type: 
  Country: None (occurrence: None)
  Receive Date: 20101112
  Receipt Date: 20101029
  Transmission Date: 20110411
  Serious: Yes (Other)
  Sender: FDA-Public Use
  Company Number: PHHY2010NZ58701

PATIENT
  Sex: Male

DRUGS (2)
  1. CLOZARIL [Suspect]
     Indication: SCHIZOPHRENIA
     Dosage: 325 MG
     Dates: start: 20100706
  2. CLOZARIL [Suspect]
     Dosage: 275 MG

REACTIONS (3)
  - EJECTION FRACTION DECREASED [None]
  - LEFT VENTRICULAR DYSFUNCTION [None]
  - PALPITATIONS [None]
